FAERS Safety Report 4790994-7 (Version None)
Quarter: 2005Q4

REPORT INFORMATION
  Report Type: 
  Country: None (occurrence: None)
  Receive Date: 20051007
  Receipt Date: 20050930
  Transmission Date: 20060501
  Serious: Yes (Hospitalization)
  Sender: FDA-Public Use
  Company Number: 2005UW14671

PATIENT
  Age: 75 Year
  Sex: Female

DRUGS (1)
  1. ARIMIDEX [Suspect]

REACTIONS (2)
  - ABDOMINAL RIGIDITY [None]
  - ILEUS [None]
